FAERS Safety Report 5691963-5 (Version None)
Quarter: 2008Q1

REPORT INFORMATION
  Report Type: 
  Country: None (occurrence: None)
  Receive Date: 20080331
  Receipt Date: 20080326
  Transmission Date: 20080703
  Serious: Yes (Hospitalization)
  Sender: FDA-Public Use
  Company Number: CAR-2008-014

PATIENT
  Sex: Male

DRUGS (1)
  1. ANDAPSIN (SUCRALFATE) [Suspect]
     Dosage: 1 G TID PO
     Route: 048

REACTIONS (1)
  - PERIPHERAL SENSORIMOTOR NEUROPATHY [None]
